FAERS Safety Report 9367109 (Version 1)
Quarter: 2013Q2

REPORT INFORMATION
  Report Type: Spontaneous
  Country: CN (occurrence: CN)
  Receive Date: 20130625
  Receipt Date: 20130625
  Transmission Date: 20140414
  Serious: Yes (Hospitalization)
  Sender: FDA-Public Use
  Company Number: CN-JNJFOC-20130613644

PATIENT
  Age: 56 Year
  Sex: Male

DRUGS (2)
  1. ULTRACET [Suspect]
     Indication: HERPES ZOSTER
     Route: 048
     Dates: start: 20120120
  2. ULTRACET [Suspect]
     Indication: HERPES ZOSTER
     Route: 048
     Dates: end: 20120206

REACTIONS (7)
  - Constipation [Recovering/Resolving]
  - Gastrointestinal disorder [Recovering/Resolving]
  - Mental disorder [Recovering/Resolving]
  - Abdominal pain [Recovering/Resolving]
  - Vomiting [Recovering/Resolving]
  - Decreased appetite [Recovering/Resolving]
  - Irritability [Recovering/Resolving]
